FAERS Safety Report 25341359 (Version 1)
Quarter: 2025Q2

REPORT INFORMATION
  Report Type: Spontaneous
  Country: IT (occurrence: IT)
  Receive Date: 20250521
  Receipt Date: 20250521
  Transmission Date: 20250716
  Serious: Yes (Other)
  Sender: ABBVIE
  Company Number: IT-ABBVIE-6290800

PATIENT

DRUGS (2)
  1. UPADACITINIB [Suspect]
     Active Substance: UPADACITINIB
     Indication: Dermatitis atopic
     Route: 048
  2. UPADACITINIB [Suspect]
     Active Substance: UPADACITINIB
     Indication: Dermatitis atopic
     Route: 048

REACTIONS (6)
  - Rhabdomyolysis [Unknown]
  - Hypercholesterolaemia [Unknown]
  - Acne pustular [Unknown]
  - Lymphopenia [Unknown]
  - Pneumonia [Unknown]
  - Herpes zoster [Unknown]
